FAERS Safety Report 9041927 (Version 1)
Quarter: 2013Q1

REPORT INFORMATION
  Report Type: Report from Study
  Country: US (occurrence: US)
  Receive Date: 20130129
  Receipt Date: 20130129
  Transmission Date: 20140127
  Serious: No
  Sender: FDA-Public Use
  Company Number: US-ABBOTT-12P-163-0903916-00

PATIENT
  Age: 49 Year
  Sex: Male

DRUGS (20)
  1. HUMIRA 40 MG/0.8 ML PEN [Suspect]
     Indication: PSORIATIC ARTHROPATHY
     Dates: start: 20110506
  2. METHOTREXATE [Concomitant]
     Indication: PRODUCT USED FOR UNKNOWN INDICATION
     Dosage: WEEKLY
  3. ASPIRIN [Concomitant]
     Indication: PYREXIA
  4. ASPIRIN [Concomitant]
     Indication: PROPHYLAXIS
  5. GUAIFENESIN [Concomitant]
     Indication: COUGH
  6. OMEPRAZOLE [Concomitant]
     Indication: HAEMATOCHEZIA
  7. ZYRTEC [Concomitant]
     Indication: PRODUCT USED FOR UNKNOWN INDICATION
  8. FOLIC ACID [Concomitant]
     Indication: PRODUCT USED FOR UNKNOWN INDICATION
  9. MULTIVITAMINS [Concomitant]
     Indication: PRODUCT USED FOR UNKNOWN INDICATION
  10. MOTRIN [Concomitant]
     Indication: PRODUCT USED FOR UNKNOWN INDICATION
  11. RISPERDAL [Concomitant]
     Indication: SLEEP DISORDER
  12. KETOCONAZOLE [Concomitant]
     Indication: PSORIASIS
     Dosage: GROIN AREA
  13. FLUOCINOLONE ACETATONIDE [Concomitant]
     Indication: PSORIASIS
     Dosage: TWICE DAILY AND AT BEDTIME
  14. CLOBETASOL PROPIONATE [Concomitant]
     Indication: PSORIASIS
  15. HYDROCORTISONE [Concomitant]
     Indication: PSORIASIS
     Dosage: OINTMENT
  16. TRIAMCINOLONE ACETONIDE [Concomitant]
     Indication: PSORIASIS
     Dosage: AT BEDTIME
  17. BETADINE [Concomitant]
     Indication: PSORIASIS
     Dosage: USES WITH CREAMS
  18. HYDROGEN PEROXIDE [Concomitant]
     Indication: PSORIASIS
  19. DOVIDONE-IODINE [Concomitant]
     Indication: PSORIASIS
  20. VOLTAREN [Concomitant]
     Indication: ARTHRITIS
     Dosage: GEL

REACTIONS (2)
  - Visual impairment [Not Recovered/Not Resolved]
  - Vision blurred [Not Recovered/Not Resolved]
